FAERS Safety Report 5445012-4 (Version None)
Quarter: 2007Q3

REPORT INFORMATION
  Report Type: 
  Country: None (occurrence: None)
  Receive Date: 20070731
  Receipt Date: 20070328
  Transmission Date: 20080115
  Serious: Yes (Hospitalization)
  Sender: FDA-Public Use
  Company Number: US200704001117

PATIENT
  Age: 57 Year
  Sex: Female
  Weight: 91.6 kg

DRUGS (8)
  1. BYETTA [Suspect]
     Indication: TYPE 2 DIABETES MELLITUS
     Dosage: 5 UG, 2D/SUBCUTANEOUS
     Route: 058
     Dates: start: 20070309, end: 20070322
  2. NEXIUM [Concomitant]
  3. LESCOL [Concomitant]
  4. NORMODYNE [Concomitant]
  5. ASPIRIN [Concomitant]
  6. KLONOPIN [Concomitant]
  7. DIOVAN HCT [Concomitant]
  8. DIOVAN (HYDROCHLOROTHIAZIDE, VALSARTAN) [Concomitant]

REACTIONS (2)
  - PANCREATITIS ACUTE [None]
  - WEIGHT DECREASED [None]
